FAERS Safety Report 6095313-4 (Version None)
Quarter: 2009Q1

REPORT INFORMATION
  Report Type: 
  Country: None (occurrence: None)
  Receive Date: 20090227
  Receipt Date: 20080314
  Transmission Date: 20090719
  Serious: No
  Sender: FDA-Public Use
  Company Number: A0713567A

PATIENT
  Age: 56 Year
  Sex: Female
  Weight: 65 kg

DRUGS (3)
  1. LAMICTAL [Suspect]
     Indication: BIPOLAR DISORDER
     Dosage: 100MG PER DAY
     Route: 048
     Dates: start: 20071201, end: 20080304
  2. PAROXETINE HCL [Suspect]
     Dates: start: 20071201
  3. MERCAPTOPURINE [Concomitant]

REACTIONS (1)
  - BLOOD SODIUM DECREASED [None]
